FAERS Safety Report 17167930 (Version 1)
Quarter: 2019Q4

REPORT INFORMATION
  Report Type: Spontaneous
  Country: US (occurrence: US)
  Receive Date: 20191125
  Receipt Date: 20191125
  Transmission Date: 20200122
  Serious: Yes (Hospitalization)
  Sender: FDA-Public Use
  Company Number: None

PATIENT
  Age: 72 Year
  Sex: Female
  Weight: 68.04 kg

DRUGS (11)
  1. CLOZAPINE 50MG TEVA [Suspect]
     Active Substance: CLOZAPINE
     Indication: SCHIZOPHRENIA
     Dosage: 1 TAB AT NIGHT
  2. RISPERDAL LOUISTA 50 MG IM EVERY 2 WEEKS [Concomitant]
  3. AMLODIPINE 10 MG PO DAILY [Concomitant]
  4. LOFLOXASIN [Concomitant]
  5. MELOXICAM. [Concomitant]
     Active Substance: MELOXICAM
  6. DEPAKOTE 500 MG AT NIGHT [Concomitant]
  7. ATORVASTATIN 10 MG DAILY [Concomitant]
  8. LOSARTAN. [Concomitant]
     Active Substance: LOSARTAN
  9. ADVAIR DISKUS [Concomitant]
     Active Substance: FLUTICASONE PROPIONATE\SALMETEROL XINAFOATE
  10. CLOZAPINE 10MG [Suspect]
     Active Substance: CLOZAPINE
     Indication: SCHIZOPHRENIA
     Dosage: 1 TAB IN AM 2 TABS AT NIGHT
     Route: 048
     Dates: start: 201312
  11. DEPAKOTE 250 MG PO/IM IN MORI=NING [Concomitant]

REACTIONS (2)
  - Small intestinal obstruction [None]
  - Pain [None]
